FAERS Safety Report 23337229 (Version 1)
Quarter: 2023Q4

REPORT INFORMATION
  Report Type: Other
  Country: KZ (occurrence: KZ)
  Receive Date: 20231226
  Receipt Date: 20231226
  Transmission Date: 20240110
  Serious: Yes (Other)
  Sender: FDA-Public Use
  Company Number: KZ-MACLEODS PHARMACEUTICALS US LTD-MAC2023044889

PATIENT

DRUGS (5)
  1. PYRAZINAMIDE [Suspect]
     Active Substance: PYRAZINAMIDE
     Indication: Pulmonary tuberculosis
     Dosage: UNK (RK-LS-5 NO. 024322, ATX CODE : J04AK01)
     Route: 065
     Dates: start: 20221019, end: 20231024
  2. PYRAZINAMIDE [Suspect]
     Active Substance: PYRAZINAMIDE
     Indication: Tuberculosis
  3. Levosin 500 [Concomitant]
     Indication: Product used for unknown indication
     Dosage: UNK (RK-LS-5 NO. 014992) (NOBEL ALMATY PHARMACEUTICAL FACTORY, KAZAKHSTAN)
     Route: 065
  4. CYCLOSERINE [Concomitant]
     Active Substance: CYCLOSERINE
     Indication: Product used for unknown indication
     Dosage: UNK (RK-LS-5 NO. 005359) (ABDI IBRAHIM GLOBAL PHARM, KAZAKHSTAN)
     Route: 065
  5. Clofazim [Concomitant]
     Indication: Product used for unknown indication
     Dosage: UNK (SAINTLIFE, INDIA)
     Route: 065

REACTIONS (2)
  - Hepatitis toxic [Unknown]
  - Hepatic enzyme increased [Unknown]
